FAERS Safety Report 17829645 (Version 2)
Quarter: 2020Q2

REPORT INFORMATION
  Report Type: Report from Study
  Country: US (occurrence: US)
  Receive Date: 20200527
  Receipt Date: 20200609
  Transmission Date: 20200714
  Serious: Yes (Hospitalization, Other)
  Sender: FDA-Public Use
  Company Number: US-SA-2020SA127114

PATIENT

DRUGS (1)
  1. ALEMTUZUMAB [Suspect]
     Active Substance: ALEMTUZUMAB
     Indication: MULTIPLE SCLEROSIS
     Dosage: 12 MG, QD
     Route: 041
     Dates: start: 20200511, end: 20200513

REACTIONS (10)
  - Chills [Unknown]
  - Aphonia [Unknown]
  - Anxiety [Unknown]
  - Pneumonia [Unknown]
  - Pyrexia [Unknown]
  - Bacterial infection [Unknown]
  - Vomiting [Unknown]
  - Pneumothorax [Unknown]
  - Pain in extremity [Unknown]
  - Intestinal perforation [Unknown]

NARRATIVE: CASE EVENT DATE: 2020
